FAERS Safety Report 8263567-1 (Version None)
Quarter: 2012Q2

REPORT INFORMATION
  Report Type: 
  Country: None (occurrence: None)
  Receive Date: 20120405
  Receipt Date: 20120228
  Transmission Date: 20120825
  Serious: Yes (Other)
  Sender: FDA-Public Use
  Company Number: CHPA2012US006301

PATIENT
  Age: 68 Year
  Sex: Female

DRUGS (6)
  1. DRUG THERAPY NOS [Concomitant]
     Indication: HYPERHIDROSIS
     Dosage: UNK, UNK
     Route: 048
  2. VITAMIN D [Concomitant]
     Dosage: 2,000 UNITS, UNK
     Route: 048
  3. LIPITOR [Concomitant]
     Dosage: UNK, UNK
     Route: 048
  4. VOLTAREN [Suspect]
     Indication: ARTHRALGIA
     Dosage: UNK, QID
     Route: 061
     Dates: start: 20120221, end: 20120223
  5. COMBIPATCH [Concomitant]
     Dosage: UNK, UNK
     Route: 062
  6. ESTROGEN NOS [Concomitant]
     Dosage: 0.5MG, UNK
     Route: 048

REACTIONS (4)
  - SENSORY DISTURBANCE [None]
  - BONE PAIN [None]
  - SWELLING [None]
  - DRUG INEFFECTIVE FOR UNAPPROVED INDICATION [None]
